FAERS Safety Report 19076768 (Version 1)
Quarter: 2021Q1

REPORT INFORMATION
  Report Type: Spontaneous
  Country: JP (occurrence: JP)
  Receive Date: 20210331
  Receipt Date: 20210331
  Transmission Date: 20210420
  Serious: Yes (Other)
  Sender: FDA-Public Use
  Company Number: NVSJ2021JP004843

PATIENT
  Sex: Female

DRUGS (1)
  1. GILENYA [Suspect]
     Active Substance: FINGOLIMOD HYDROCHLORIDE
     Indication: MULTIPLE SCLEROSIS RELAPSE PROPHYLAXIS
     Dosage: UNK
     Route: 065
     Dates: start: 20150928, end: 20160119

REACTIONS (8)
  - Fall [Unknown]
  - Expanded disability status scale score increased [Unknown]
  - Lymphocyte count decreased [Unknown]
  - Gait disturbance [Unknown]
  - Liver disorder [Unknown]
  - JC polyomavirus test positive [Unknown]
  - Secondary progressive multiple sclerosis [Unknown]
  - Malaise [Unknown]

NARRATIVE: CASE EVENT DATE: 202006
